FAERS Safety Report 16359532 (Version 2)
Quarter: 2019Q2

REPORT INFORMATION
  Report Type: Report from Study
  Country: None (occurrence: NL)
  Receive Date: 20190528
  Receipt Date: 20190630
  Transmission Date: 20190711
  Serious: Yes (Hospitalization)
  Sender: FDA-Public Use
  Company Number: NL-ABBVIE-19S-114-2796205-00

PATIENT
  Age: 71 Year
  Sex: Male

DRUGS (2)
  1. DUODOPA [Suspect]
     Active Substance: CARBIDOPA\LEVODOPA
     Dosage: MD: 3.5 CD: 4.8 ED: 3.5 NIGHT DOSE: 3.2 ED: 3.2
     Route: 050
  2. DUODOPA [Suspect]
     Active Substance: CARBIDOPA\LEVODOPA
     Indication: PARKINSON^S DISEASE
     Route: 050
     Dates: start: 20170201

REACTIONS (13)
  - Tremor [Recovered/Resolved]
  - Feeding disorder [Recovered/Resolved]
  - Tremor [Not Recovered/Not Resolved]
  - Medical device site inflammation [Unknown]
  - Freezing phenomenon [Recovered/Resolved]
  - Reduced facial expression [Recovered/Resolved]
  - Gait disturbance [Not Recovered/Not Resolved]
  - Device breakage [Unknown]
  - Aphonia [Recovered/Resolved]
  - Bradykinesia [Not Recovered/Not Resolved]
  - Musculoskeletal stiffness [Recovered/Resolved]
  - Gait disturbance [Recovered/Resolved]
  - Fatigue [Recovered/Resolved]

NARRATIVE: CASE EVENT DATE: 20190417
